FAERS Safety Report 23308332 (Version 1)
Quarter: 2023Q4

REPORT INFORMATION
  Report Type: Spontaneous
  Country: US (occurrence: US)
  Receive Date: 20231218
  Receipt Date: 20231218
  Transmission Date: 20240109
  Serious: No
  Sender: FDA-Public Use
  Company Number: US-SA-SAC20231212000705

PATIENT
  Age: 46 Year
  Sex: Male

DRUGS (7)
  1. DUPIXENT [Suspect]
     Active Substance: DUPILUMAB
     Indication: Dermatitis atopic
     Dosage: 300MG QOW
     Route: 058
     Dates: start: 20200818
  2. ATORVASTATIN [Concomitant]
     Active Substance: ATORVASTATIN
  3. FLUTICASONE [Concomitant]
     Active Substance: FLUTICASONE
  4. KETOCONAZOLE [Concomitant]
     Active Substance: KETOCONAZOLE
  5. MOMETASONE [Concomitant]
     Active Substance: MOMETASONE
  6. NYSTATIN [Concomitant]
     Active Substance: NYSTATIN
  7. PFIZER BIONTECH COVID-19 VACCINE, BIVALENT (ORIGINAL AND OMICRON BA.4/ [Concomitant]
     Indication: Immunisation

REACTIONS (4)
  - Sleep disorder [Unknown]
  - Dermatitis atopic [Unknown]
  - Rash [Unknown]
  - Discomfort [Unknown]

NARRATIVE: CASE EVENT DATE: 20231101
